FAERS Safety Report 4360760-5 (Version None)
Quarter: 2004Q2

REPORT INFORMATION
  Report Type: 
  Country: None (occurrence: None)
  Receive Date: 20040517
  Receipt Date: 20040503
  Transmission Date: 20050107
  Serious: Yes (Hospitalization)
  Sender: FDA-Public Use
  Company Number: A0509426A

PATIENT
  Age: 48 Year
  Sex: Female

DRUGS (8)
  1. NICODERM CQ [Suspect]
     Indication: EX-SMOKER
     Dosage: 14 MG/ TRANSDERMAL
     Route: 062
     Dates: start: 20031201
  2. THYROXINE SODIUM [Concomitant]
  3. LITHIUM CARBONATE [Concomitant]
  4. QUETIAPINE FUMARATE [Concomitant]
  5. CLONAZEPAM [Concomitant]
  6. LITHIUM CARBONATE [Concomitant]
  7. ZIPRASIDONE [Concomitant]
  8. TRAZODONE HCL [Concomitant]

REACTIONS (4)
  - CONDITION AGGRAVATED [None]
  - DEPRESSION [None]
  - HYPOTHYROIDISM [None]
  - TREATMENT NONCOMPLIANCE [None]
